FAERS Safety Report 5470287-5 (Version None)
Quarter: 2007Q3

REPORT INFORMATION
  Report Type: 
  Country: None (occurrence: None)
  Receive Date: 20070924
  Receipt Date: 20070914
  Transmission Date: 20080115
  Serious: Yes (Disabling)
  Sender: FDA-Public Use
  Company Number: 2007-GWUS-0475

PATIENT
  Sex: Female

DRUGS (1)
  1. ALDARA [Suspect]
     Indication: SCAR
     Dosage: QOD TOPICAL
     Route: 061
     Dates: start: 20070101

REACTIONS (7)
  - BLINDNESS [None]
  - EYE SWELLING [None]
  - OCULAR HYPERAEMIA [None]
  - OFF LABEL USE [None]
  - PHOTOPSIA [None]
  - VISUAL ACUITY REDUCED [None]
  - VITREOUS DETACHMENT [None]
